FAERS Safety Report 8774012 (Version 4)
Quarter: 2012Q4

REPORT INFORMATION
  Report Type: Report from Study
  Country: JP (occurrence: JP)
  Receive Date: 20120908
  Receipt Date: 20121108
  Transmission Date: 20130627
  Serious: Yes (Hospitalization)
  Sender: FDA-Public Use
  Company Number: JP-ABBOTT-12P-087-0975187-00

PATIENT
  Age: 54 Year
  Sex: Male

DRUGS (6)
  1. KALETRA TABLETS [Suspect]
     Indication: HIV INFECTION
     Route: 048
  2. LEXIVA [Suspect]
     Indication: HIV INFECTION
     Route: 048
     Dates: start: 20050728
  3. EMTRICITABINE/TENOFOVIR DISOPROXIL FUMARATE [Concomitant]
     Indication: HIV INFECTION
     Route: 048
  4. GLIMEPIRIDE [Concomitant]
     Indication: DIABETES MELLITUS
     Route: 048
     Dates: start: 20050401
  5. GLIMEPIRIDE [Concomitant]
     Dates: end: 20110509
  6. RURIOCTOCOG ALFA [Concomitant]
     Indication: FACTOR VIII DEFICIENCY

REACTIONS (1)
  - Biliary colic [Recovered/Resolved]
